FAERS Safety Report 9933860 (Version 1)
Quarter: 2014Q1

REPORT INFORMATION
  Report Type: Report from Study
  Country: US (occurrence: US)
  Receive Date: 20140228
  Receipt Date: 20140228
  Transmission Date: 20141002
  Serious: No
  Sender: FDA-Public Use
  Company Number: US-MYLANLABS-2013S1016880

PATIENT
  Age: 34 Year
  Sex: Female

DRUGS (4)
  1. AMNESTEEM CAPSULES [Suspect]
     Indication: ACNE
     Route: 048
     Dates: start: 201301, end: 20130729
  2. CLARAVIS [Suspect]
     Indication: ACNE
     Route: 048
     Dates: start: 201207
  3. ORAL CONTRACEPTIVE NOS [Concomitant]
     Indication: CONTRACEPTION
  4. ZYRTEC [Concomitant]

REACTIONS (1)
  - Eczema [Not Recovered/Not Resolved]
